FAERS Safety Report 10185894 (Version 1)
Quarter: 2014Q2

REPORT INFORMATION
  Report Type: Spontaneous
  Country: AU (occurrence: AU)
  Receive Date: 20140521
  Receipt Date: 20140521
  Transmission Date: 20141212
  Serious: Yes (Life-Threatening, Hospitalization, Other)
  Sender: FDA-Public Use
  Company Number: AU-BAYER-2014-070884

PATIENT
  Age: 75 Year
  Sex: Male

DRUGS (8)
  1. RIVAROXABAN [Suspect]
     Indication: ATRIAL FIBRILLATION
     Dosage: 20MG DAILY
     Route: 048
  2. ACETYLSALICYLIC ACID (} 100 MG) [Suspect]
     Indication: MYOCARDIAL INFARCTION
     Dosage: 300 MG, ONCE - LOADING DOSE
  3. ACETYLSALICYLIC ACID (} 100 MG) [Suspect]
     Indication: MYOCARDIAL INFARCTION
     Dosage: 100 MG DAILY
     Route: 048
  4. TICAGRELOR [Suspect]
     Indication: MYOCARDIAL INFARCTION
     Dosage: 180 MG, ONCE - LOADING DOSE
  5. TICAGRELOR [Suspect]
     Indication: MYOCARDIAL INFARCTION
     Dosage: 90 MG, BID
  6. IBUPROFEN [Suspect]
     Indication: ANGINA PECTORIS
     Dosage: 400 MG, TID AND PRN
     Route: 048
  7. PARACETAMOL [Suspect]
     Indication: ANGINA PECTORIS
     Dosage: 1 G, QID
     Route: 048
  8. METOPROLOL [Concomitant]
     Dosage: 50 MG, UNK

REACTIONS (4)
  - Pericardial haemorrhage [Recovered/Resolved]
  - Pericardial haemorrhage [Recovered/Resolved]
  - Ischaemic hepatitis [Recovered/Resolved]
  - Coagulopathy [Recovered/Resolved]
